FAERS Safety Report 4499275-2 (Version None)
Quarter: 2004Q4

REPORT INFORMATION
  Report Type: 
  Country: None (occurrence: None)
  Receive Date: 20041111
  Receipt Date: 20041102
  Transmission Date: 20050328
  Serious: Yes (Death)
  Sender: FDA-Public Use
  Company Number: US-JNJFOC-20040908829

PATIENT
  Age: 21 Year
  Sex: Female

DRUGS (6)
  1. ULTRACET [Suspect]
     Indication: DRUG USE FOR UNKNOWN INDICATION
     Route: 049
  2. CYCLOBENZAPRINE [Suspect]
     Indication: DRUG USE FOR UNKNOWN INDICATION
     Route: 049
  3. AMITRIPTYLINE [Suspect]
     Indication: DRUG USE FOR UNKNOWN INDICATION
     Route: 049
  4. TIZANIDINE [Suspect]
     Indication: DRUG USE FOR UNKNOWN INDICATION
  5. ROFECOXIB [Suspect]
     Indication: DRUG USE FOR UNKNOWN INDICATION
  6. OMEPRAZOLE [Suspect]
     Indication: DRUG USE FOR UNKNOWN INDICATION

REACTIONS (9)
  - AGGRESSION [None]
  - ASPIRATION [None]
  - COMPLETED SUICIDE [None]
  - DEPRESSED LEVEL OF CONSCIOUSNESS [None]
  - DRUG TOXICITY [None]
  - LUNG CREPITATION [None]
  - MULTIPLE DRUG OVERDOSE INTENTIONAL [None]
  - SEDATION [None]
  - VOMITING [None]
